FAERS Safety Report 13607783 (Version 4)
Quarter: 2017Q3

REPORT INFORMATION
  Report Type: Report from Study
  Country: US (occurrence: US)
  Receive Date: 20170602
  Receipt Date: 20170818
  Transmission Date: 20171127
  Serious: Yes (Other)
  Sender: FDA-Public Use
  Company Number: US-PFIZER INC-2017107581

PATIENT
  Age: 62 Year
  Sex: Female

DRUGS (2)
  1. IBRANCE [Suspect]
     Active Substance: PALBOCICLIB
     Indication: JC VIRUS INFECTION
     Dosage: 75 MG, DAILY
     Route: 048
     Dates: start: 20170426
  2. IBRANCE [Suspect]
     Active Substance: PALBOCICLIB
     Indication: BREAST CANCER
     Dosage: 125 MG, CYCLIC (ONCE DAILY FOR 21 DAYS IN A ROW, FOLLOWED BY 7 DAYS OFF EVERY 28 DAYS)
     Route: 048
     Dates: start: 20170306, end: 20170425

REACTIONS (16)
  - Bone marrow failure [Unknown]
  - Diarrhoea [Unknown]
  - Nasopharyngitis [Unknown]
  - Anaemia [Unknown]
  - Stomatitis [Unknown]
  - Abdominal discomfort [Unknown]
  - Erythema [Unknown]
  - Condition aggravated [Not Recovered/Not Resolved]
  - Skin irritation [Not Recovered/Not Resolved]
  - Constipation [Unknown]
  - Dehydration [Unknown]
  - Pruritus [Unknown]
  - Leukopenia [Not Recovered/Not Resolved]
  - Fatigue [Not Recovered/Not Resolved]
  - Rash [Unknown]
  - Cough [Unknown]

NARRATIVE: CASE EVENT DATE: 2017
